FAERS Safety Report 7396800-9 (Version None)
Quarter: 2011Q2

REPORT INFORMATION
  Report Type: 
  Country: None (occurrence: None)
  Receive Date: 20110406
  Receipt Date: 20110401
  Transmission Date: 20111010
  Serious: Yes (Other)
  Sender: FDA-Public Use
  Company Number: JP-ROXANE LABORATORIES, INC.-2011-RO-00446RO

PATIENT
  Age: 80 Year
  Sex: Male
  Weight: 66 kg

DRUGS (3)
  1. ESTRAMUSTINE [Suspect]
     Indication: PROSTATE CANCER
     Dates: start: 20070101, end: 20080104
  2. DOCETAXEL [Suspect]
     Indication: PROSTATE CANCER
     Dates: start: 20070101, end: 20080104
  3. DEXAMETHASONE [Suspect]
     Indication: PROSTATE CANCER
     Dates: start: 20070101, end: 20080104

REACTIONS (2)
  - ANAEMIA [None]
  - NICOTINIC ACID DEFICIENCY [None]
